FAERS Safety Report 10067971 (Version 1)
Quarter: 2014Q2

REPORT INFORMATION
  Report Type: Spontaneous
  Country: GB (occurrence: GB)
  Receive Date: 20140409
  Receipt Date: 20140409
  Transmission Date: 20141212
  Serious: Yes (Hospitalization, Other)
  Sender: FDA-Public Use
  Company Number: GB-PFIZER INC-2014097935

PATIENT
  Age: 58 Year
  Sex: Male
  Weight: 74 kg

DRUGS (6)
  1. METHYLPREDNISOLONE [Suspect]
     Indication: NEPHROTIC SYNDROME
     Dosage: 500 MG, UNK
     Route: 042
     Dates: start: 20140224, end: 20140226
  2. PREDNISOLONE [Suspect]
     Indication: NEPHROTIC SYNDROME
     Dosage: 60 MG, 1X/DAY
     Route: 048
     Dates: start: 20140227, end: 20140228
  3. WARFARIN [Suspect]
     Indication: NEPHROTIC SYNDROME
     Dosage: UNK ACCORDING TO INR.
     Route: 048
     Dates: start: 20111128, end: 20140228
  4. DOXAZOSIN [Concomitant]
     Dosage: UNK
  5. FUROSEMIDE [Concomitant]
     Dosage: UNK
  6. RAMIPRIL [Concomitant]
     Dosage: UNK

REACTIONS (2)
  - International normalised ratio increased [Recovering/Resolving]
  - Haemorrhage [Recovered/Resolved]
